FAERS Safety Report 18574552 (Version 1)
Quarter: 2020Q4

REPORT INFORMATION
  Report Type: Spontaneous
  Country: US (occurrence: US)
  Receive Date: 20201202
  Receipt Date: 20201202
  Transmission Date: 20210114
  Serious: No
  Sender: FDA-Public Use
  Company Number: None

PATIENT
  Age: 66 Year
  Sex: Male
  Weight: 78.02 kg

DRUGS (1)
  1. SODIUM ZIRCONIUM CYCLOSILICATE (SODIUM ZIRCONIUM CYCLOSILICATE 10GM/PK [Suspect]
     Active Substance: SODIUM ZIRCONIUM CYCLOSILICATE
     Indication: HYPERLIPIDAEMIA
     Route: 048
     Dates: start: 20200225, end: 20200805

REACTIONS (1)
  - Oedema peripheral [None]

NARRATIVE: CASE EVENT DATE: 20200804
